FAERS Safety Report 4416505-3 (Version None)
Quarter: 2004Q2

REPORT INFORMATION
  Report Type: 
  Country: None (occurrence: None)
  Receive Date: 20040630
  Receipt Date: 20040603
  Transmission Date: 20050107
  Serious: Yes (Other)
  Sender: FDA-Public Use
  Company Number: ENTC2004-0101

PATIENT
  Sex: Male

DRUGS (4)
  1. STALEVO 100 [Suspect]
     Indication: PARKINSON'S DISEASE
     Dosage: 100 MG/25 MG/200 MG 4 TIMES DAILY, ORAL
     Route: 048
     Dates: start: 20040301, end: 20040517
  2. HYZAAR [Concomitant]
  3. ZOCOR [Concomitant]
  4. ATENOLOL [Concomitant]

REACTIONS (2)
  - CONSTIPATION [None]
  - VISUAL DISTURBANCE [None]
